FAERS Safety Report 8763911 (Version 2)
Quarter: 2012Q4

REPORT INFORMATION
  Report Type: 
  Country: US (occurrence: US)
  Receive Date: 20120831
  Receipt Date: 20121016
  Transmission Date: 20130627
  Serious: No
  Sender: FDA-Public Use
  Company Number: US-B.I. PHARMACEUTICALS,INC./RIDGEFIELD-2012-BP-20940BP

PATIENT
  Age: 87 None
  Sex: Male
  Weight: 86 kg

DRUGS (8)
  1. PRADAXA [Suspect]
     Indication: THROMBOSIS
     Dosage: 300 mg
     Route: 048
     Dates: start: 201207, end: 201209
  2. PRADAXA [Suspect]
     Indication: ANTICOAGULANT THERAPY
  3. PRADAXA [Suspect]
     Indication: ATRIAL FIBRILLATION
  4. ALPRAZOLAM [Concomitant]
     Indication: ANXIETY
     Dosage: 6 mg
     Route: 048
     Dates: start: 2002
  5. TRAMADOL [Concomitant]
     Indication: SLEEP DISORDER
     Dosage: 300 mg
     Route: 048
     Dates: start: 20101214
  6. OMEPRAZOLE [Concomitant]
     Indication: DYSPEPSIA
     Route: 048
  7. PRISTIQ [Concomitant]
     Indication: DEPRESSION
     Dosage: 50 mg
     Route: 048
     Dates: start: 201102
  8. ENDOCET [Concomitant]
     Indication: PAIN
     Dosage: \
     Route: 048
     Dates: start: 20101214

REACTIONS (5)
  - Dyspepsia [Not Recovered/Not Resolved]
  - Throat irritation [Not Recovered/Not Resolved]
  - Gastrooesophageal reflux disease [Recovered/Resolved]
  - Dyspepsia [Recovered/Resolved]
  - Weight decreased [Recovered/Resolved]
